FAERS Safety Report 20965142 (Version 1)
Quarter: 2022Q2

REPORT INFORMATION
  Report Type: Report from Study
  Country: US (occurrence: US)
  Receive Date: 20220616
  Receipt Date: 20220616
  Transmission Date: 20220721
  Serious: No
  Sender: FDA-Public Use
  Company Number: US-NOVARTISTESTPH-NVSC2022US137764

PATIENT
  Sex: Male

DRUGS (2)
  1. COSENTYX [Suspect]
     Active Substance: SECUKINUMAB
     Indication: Psoriasis
     Dosage: UNK (STARTED 8 YEARS AGO)
     Route: 065
  2. COSENTYX [Suspect]
     Active Substance: SECUKINUMAB
     Dosage: 300 MG, QW (ONCE A WEEK FOR 5 WEEKS AND THEN Q 4 WEEKS)
     Route: 058

REACTIONS (3)
  - Scratch [Unknown]
  - Psoriasis [Recovering/Resolving]
  - Therapeutic product effect incomplete [Recovering/Resolving]
